FAERS Safety Report 9254646 (Version 1)
Quarter: 2013Q2

REPORT INFORMATION
  Report Type: Report from Study
  Country: PL (occurrence: PL)
  Receive Date: 20130425
  Receipt Date: 20130425
  Transmission Date: 20140414
  Serious: Yes (Other)
  Sender: FDA-Public Use
  Company Number: PL-ASTELLAS-2013US004280

PATIENT
  Age: 65 Year
  Sex: Male

DRUGS (3)
  1. ERLOTINIB TABLET [Suspect]
     Indication: LUNG ADENOCARCINOMA
     Dosage: 150 MG, UID/QD
     Route: 048
     Dates: start: 20120604
  2. ERLOTINIB TABLET [Suspect]
     Dosage: 100 MG, UID/QD
     Route: 048
     Dates: end: 20130119
  3. INSULIN [Concomitant]
     Indication: DIABETES MELLITUS
     Dosage: UNK
     Route: 065

REACTIONS (5)
  - Neutropenia [Unknown]
  - Hiccups [Unknown]
  - Asthenia [Unknown]
  - Eructation [Unknown]
  - Malignant neoplasm progression [Unknown]
